FAERS Safety Report 18268538 (Version 1)
Quarter: 2020Q3

REPORT INFORMATION
  Report Type: Report from Study
  Country: GB (occurrence: GB)
  Receive Date: 20200915
  Receipt Date: 20200915
  Transmission Date: 20201103
  Serious: Yes (Hospitalization)
  Sender: FDA-Public Use
  Company Number: PHHY2019GB208947

PATIENT
  Age: 67 Year
  Sex: Male

DRUGS (2)
  1. LUTATHERA [Suspect]
     Active Substance: LUTETIUM OXODOTREOTIDE LU-177
     Dosage: 4 CYCLES
     Route: 065
     Dates: start: 20160628
  2. LUTATHERA [Suspect]
     Active Substance: LUTETIUM OXODOTREOTIDE LU-177
     Indication: PANCREATIC NEUROENDOCRINE TUMOUR METASTATIC
     Dosage: 1 CYCLES
     Route: 065
     Dates: start: 20150507, end: 20160628

REACTIONS (7)
  - Gastric varices haemorrhage [Recovered/Resolved]
  - Gastric varices haemorrhage [Recovered/Resolved]
  - Sepsis [Recovered/Resolved]
  - Gastric varices haemorrhage [Recovered/Resolved]
  - Confusional state [Recovered/Resolved]
  - Renal impairment [Recovered/Resolved]
  - Gastric varices haemorrhage [Recovered/Resolved]

NARRATIVE: CASE EVENT DATE: 20150716
